FAERS Safety Report 23606215 (Version 1)
Quarter: 2024Q1

REPORT INFORMATION
  Report Type: Spontaneous
  Country: US (occurrence: US)
  Receive Date: 20240307
  Receipt Date: 20240307
  Transmission Date: 20240410
  Serious: No
  Sender: FDA-Public Use
  Company Number: US-SA-SAC20240304000612

PATIENT
  Age: 28 Year
  Sex: Female
  Weight: 68.94 kg

DRUGS (1)
  1. DUPIXENT [Suspect]
     Active Substance: DUPILUMAB
     Indication: Dermatitis atopic
     Dosage: 300 MG, QOW
     Route: 058
     Dates: start: 202111

REACTIONS (8)
  - Acne cystic [Recovered/Resolved]
  - Lymphadenitis [Recovered/Resolved]
  - Skin swelling [Recovering/Resolving]
  - Skin discolouration [Unknown]
  - Rash [Recovering/Resolving]
  - Eczema [Not Recovered/Not Resolved]
  - Pruritus [Not Recovered/Not Resolved]
  - Dry skin [Not Recovered/Not Resolved]

NARRATIVE: CASE EVENT DATE: 20231101
